FAERS Safety Report 8269246-9 (Version None)
Quarter: 2012Q2

REPORT INFORMATION
  Report Type: 
  Country: None (occurrence: None)
  Receive Date: 20120409
  Receipt Date: 20120330
  Transmission Date: 20120825
  Serious: Yes (Other)
  Sender: FDA-Public Use
  Company Number: US-ALLERGAN-1204640US

PATIENT
  Age: 32 Year
  Sex: Female

DRUGS (4)
  1. BOTOX COSMETIC [Suspect]
     Indication: SKIN WRINKLING
     Dosage: UNK
     Route: 030
     Dates: start: 20111201, end: 20111201
  2. BOTOX COSMETIC [Suspect]
  3. BOTOX COSMETIC [Suspect]
  4. ZYRTEC [Concomitant]
     Indication: SEASONAL ALLERGY
     Dosage: UNK

REACTIONS (5)
  - LYMPHADENOPATHY [None]
  - HEADACHE [None]
  - VOCAL CORD PARALYSIS [None]
  - APHONIA [None]
  - MALAISE [None]
